FAERS Safety Report 10076883 (Version 4)
Quarter: 2014Q2

REPORT INFORMATION
  Report Type: Spontaneous
  Country: GB (occurrence: GB)
  Receive Date: 20140414
  Receipt Date: 20140610
  Transmission Date: 20141212
  Serious: Yes (Other)
  Sender: FDA-Public Use
  Company Number: GB-TEVA-472692ISR

PATIENT
  Sex: Female

DRUGS (6)
  1. METFORMIN [Suspect]
     Indication: DIABETES MELLITUS
  2. FLUCLOXACILLIN [Suspect]
  3. GENTAMICIN [Suspect]
  4. APIXABAN [Interacting]
     Indication: HIP ARTHROPLASTY
  5. APIXABAN [Interacting]
     Indication: KNEE ARTHROPLASTY
  6. IBUPROFEN [Interacting]

REACTIONS (3)
  - Renal failure [Unknown]
  - Drug interaction [Unknown]
  - Blood pressure decreased [Unknown]
